FAERS Safety Report 16305248 (Version 1)
Quarter: 2019Q2

REPORT INFORMATION
  Report Type: Spontaneous
  Country: US (occurrence: US)
  Receive Date: 20190511
  Receipt Date: 20190511
  Transmission Date: 20190711
  Serious: Yes (Disabling)
  Sender: FDA-Public Use
  Company Number: None

PATIENT
  Age: 20 Year
  Sex: Male
  Weight: 72 kg

DRUGS (4)
  1. GABAPENTIN. [Concomitant]
     Active Substance: GABAPENTIN
  2. ADDERALL [Concomitant]
     Active Substance: AMPHETAMINE ASPARTATE\AMPHETAMINE SULFATE\DEXTROAMPHETAMINE SACCHARATE\DEXTROAMPHETAMINE SULFATE
  3. AIMOVIG [Concomitant]
     Active Substance: ERENUMAB-AOOE
  4. DOXYCYCLINE HCL [Suspect]
     Active Substance: DOXYCYCLINE HYDROCHLORIDE
     Indication: CELLULITIS
     Dosage: ?          QUANTITY:2 CAPSULE(S);?
     Route: 048
     Dates: start: 20181202, end: 20181206

REACTIONS (1)
  - Migraine with aura [None]

NARRATIVE: CASE EVENT DATE: 20181204
